FAERS Safety Report 10195838 (Version 1)
Quarter: 2014Q2

REPORT INFORMATION
  Report Type: Spontaneous
  Country: PT (occurrence: PT)
  Receive Date: 20140527
  Receipt Date: 20140527
  Transmission Date: 20141212
  Serious: Yes (Hospitalization)
  Sender: FDA-Public Use
  Company Number: PT-CELGENEUS-130-50794-14051971

PATIENT
  Age: 59 Year
  Sex: Male

DRUGS (3)
  1. VIDAZA [Suspect]
     Indication: MYELODYSPLASTIC SYNDROME
     Route: 065
     Dates: start: 200704
  2. LEVOFLOXACIN [Concomitant]
     Indication: PROPHYLAXIS
     Route: 065
  3. FLUCONAZOL [Concomitant]
     Indication: PROPHYLAXIS
     Route: 065

REACTIONS (3)
  - Deafness unilateral [Unknown]
  - Ataxia [Recovering/Resolving]
  - Cerebral haemorrhage [Recovering/Resolving]
